FAERS Safety Report 9170753 (Version 1)
Quarter: 2013Q1

REPORT INFORMATION
  Report Type: Spontaneous
  Country: US (occurrence: None)
  Receive Date: 20130315
  Receipt Date: 20130315
  Transmission Date: 20140127
  Serious: Yes (Other)
  Sender: FDA-Public Use
  Company Number: None

PATIENT
  Age: 58 Year
  Sex: Female

DRUGS (1)
  1. SUTENT [Suspect]
     Indication: GASTRIC CANCER
     Route: 048
     Dates: start: 20130201, end: 20130212

REACTIONS (6)
  - Hypoaesthesia [None]
  - Pain [None]
  - Abdominal pain upper [None]
  - Swelling [None]
  - Dyspnoea [None]
  - Dizziness [None]
